FAERS Safety Report 8760435 (Version 1)
Quarter: 2012Q4

REPORT INFORMATION
  Report Type: 
  Country: US (occurrence: US)
  Receive Date: 20120830
  Receipt Date: 20120830
  Transmission Date: 20130627
  Serious: Yes (Other)
  Sender: FDA-Public Use
  Company Number: US-JNJFOC-20120811231

PATIENT

DRUGS (4)
  1. TOPIRAMATE [Suspect]
     Indication: MIGRAINE
     Route: 048
  2. TOPIRAMATE [Suspect]
     Indication: EPILEPSY
     Route: 048
  3. TOPIRAMATE [Suspect]
     Indication: MIGRAINE
     Route: 042
  4. TOPIRAMATE [Suspect]
     Indication: EPILEPSY
     Route: 042

REACTIONS (1)
  - Presyncope [Unknown]
